FAERS Safety Report 12252191 (Version 1)
Quarter: 2016Q2

REPORT INFORMATION
  Report Type: Spontaneous
  Country: US (occurrence: None)
  Receive Date: 20160408
  Receipt Date: 20160408
  Transmission Date: 20160815
  Serious: Yes (Hospitalization)
  Sender: FDA-Public Use
  Company Number: None

PATIENT
  Age: 63 Year
  Sex: Male
  Weight: 62.3 kg

DRUGS (1)
  1. DIVALPROEX [Suspect]
     Active Substance: DIVALPROEX SODIUM
     Indication: SEIZURE
     Dosage: MG BID PO
     Route: 048
     Dates: start: 20151128

REACTIONS (5)
  - Hyperammonaemic encephalopathy [None]
  - Drug level increased [None]
  - Disturbance in attention [None]
  - Mental status changes [None]
  - Asterixis [None]

NARRATIVE: CASE EVENT DATE: 20160311
